FAERS Safety Report 5389181-3 (Version None)
Quarter: 2007Q3

REPORT INFORMATION
  Report Type: 
  Country: None (occurrence: None)
  Receive Date: 20070717
  Receipt Date: 20070706
  Transmission Date: 20080115
  Serious: Yes (Other)
  Sender: FDA-Public Use
  Company Number: GB-JNJFOC-20070701185

PATIENT
  Sex: Female
  Weight: 60 kg

DRUGS (6)
  1. REMICADE [Suspect]
     Indication: RHEUMATOID ARTHRITIS
     Dosage: STOPPED 2 YEARS AFTER EVENT
     Route: 042
  2. METHOTREXATE [Concomitant]
     Dosage: AT BASELINE
  3. PREDNISOLONE [Concomitant]
     Dosage: AT BASELINE
  4. HRT [Concomitant]
     Dosage: AT BASELINE
  5. OMEPRAZOLE [Concomitant]
     Dosage: AT BASELINE
  6. RANITIDINE [Concomitant]
     Dosage: AT BASELINE

REACTIONS (1)
  - SMEAR CERVIX ABNORMAL [None]
